FAERS Safety Report 5658934-6 (Version None)
Quarter: 2008Q1

REPORT INFORMATION
  Report Type: 
  Country: None (occurrence: None)
  Receive Date: 20080310
  Receipt Date: 20070503
  Transmission Date: 20080703
  Serious: No
  Sender: FDA-Public Use
  Company Number: US-BAYER-200711416BCC

PATIENT
  Age: 51 Year
  Sex: Female

DRUGS (6)
  1. ALEVE [Suspect]
     Indication: NECK PAIN
     Route: 048
  2. LEXAPRO [Suspect]
     Indication: DEPRESSION
     Dosage: TOTAL DAILY DOSE: 20 MG  UNIT DOSE: 20 MG
     Dates: start: 20060601
  3. LEXAPRO [Suspect]
     Dosage: TOTAL DAILY DOSE: 10 MG  UNIT DOSE: 10 MG
     Dates: start: 20040101, end: 20060601
  4. ADVIL [Suspect]
     Indication: NECK PAIN
  5. EXCEDRIN (MIGRAINE) [Suspect]
     Indication: MIGRAINE
  6. CELEBREX [Suspect]
     Indication: ARTHRALGIA

REACTIONS (1)
  - GASTROOESOPHAGEAL REFLUX DISEASE [None]
